FAERS Safety Report 9248641 (Version 1)
Quarter: 2013Q1

REPORT INFORMATION
  Report Type: Spontaneous
  Country: US (occurrence: None)
  Receive Date: 20130305
  Receipt Date: 20130305
  Transmission Date: 20140127
  Serious: Yes (Other)
  Sender: FDA-Public Use
  Company Number: 163-21880-12092693

PATIENT
  Age: 71 Year
  Sex: Female

DRUGS (14)
  1. REVLIMID (LENALIDOMIDE) (CAPSULES) [Suspect]
     Indication: PLASMA CELL MYELOMA
     Dosage: 14 IN 14 D
     Route: 048
     Dates: start: 20120523, end: 20120921
  2. NEURONTIN [Suspect]
  3. NORVASC (AMLODIPINE BESILATE) [Suspect]
  4. LIDOCAINE (LIDOCAINE) [Suspect]
  5. FENTANYL [Suspect]
  6. VITAMIN B COMPLEX [Suspect]
  7. FOLIC ACID [Suspect]
  8. ASPIRIN (ACETYLSALICYLIC ACID) [Suspect]
  9. DEXAMETHASONE (DEXAMETHASONE) [Suspect]
  10. CALCIUM (CALCIUM) [Suspect]
  11. ELAVIL (AMITRIPTYLINE HYDROCHLORIDE) [Suspect]
  12. OMEPRAZOLE (OMEPRAZOLE) [Suspect]
  13. LOPRESSOR (METOPROLOL TARTRATE) [Suspect]
  14. DILAUDID (HYDROMORPHONE HYDROCHLORIDE) [Suspect]

REACTIONS (2)
  - Osteolysis [None]
  - White blood cell count decreased [None]
